FAERS Safety Report 4657695-7 (Version None)
Quarter: 2005Q2

REPORT INFORMATION
  Report Type: 
  Country: None (occurrence: None)
  Receive Date: 20050406
  Receipt Date: 20041213
  Transmission Date: 20051028
  Serious: Yes (Other)
  Sender: FDA-Public Use
  Company Number: ENTC2004-0234

PATIENT
  Age: 68 Year
  Sex: Male

DRUGS (3)
  1. STALEVO 100 [Suspect]
     Indication: PARKINSON'S DISEASE
     Dosage: 150 MG/ 37.5 MG/ 200 MG QID, ORAL
     Route: 048
     Dates: start: 20040929
  2. MAXZIDE [Concomitant]
  3. VIAGRA [Concomitant]

REACTIONS (2)
  - DIARRHOEA [None]
  - SEXUAL DYSFUNCTION [None]
